FAERS Safety Report 16698308 (Version 2)
Quarter: 2019Q3

REPORT INFORMATION
  Report Type: Report from Study
  Country: US (occurrence: US)
  Receive Date: 20190813
  Receipt Date: 20190926
  Transmission Date: 20191004
  Serious: Yes (Other)
  Sender: FDA-Public Use
  Company Number: US-ROCHE-2368908

PATIENT
  Age: 68 Year
  Sex: Male
  Weight: 85.7 kg

DRUGS (12)
  1. ATEZOLIZUMAB. [Suspect]
     Active Substance: ATEZOLIZUMAB
     Indication: HORMONE-REFRACTORY PROSTATE CANCER
     Dosage: MOST RECENT DOSE PRIOR TO EVENT ONSET: 03/JUL/2019.
     Route: 041
     Dates: start: 20190612
  2. CALAN [Concomitant]
     Active Substance: VERAPAMIL HYDROCHLORIDE
  3. ROXICODONE [Concomitant]
     Active Substance: OXYCODONE HYDROCHLORIDE
  4. OXYCONTIN [Concomitant]
     Active Substance: OXYCODONE HYDROCHLORIDE
  5. ZETIA [Concomitant]
     Active Substance: EZETIMIBE
  6. CABOZANTINIB [Suspect]
     Active Substance: CABOZANTINIB
     Indication: HORMONE-REFRACTORY PROSTATE CANCER
     Dosage: MOST RECENT DOSE PRIOR TO EVENT ONSET: 22/JUL/2019.
     Route: 048
     Dates: start: 20190612
  7. SENOKOT-S [Concomitant]
     Active Substance: DOCUSATE SODIUM\SENNOSIDES
  8. NEURONTIN [Concomitant]
     Active Substance: GABAPENTIN
  9. TURMERIC [CURCUMA LONGA] [Concomitant]
  10. SYNTHROID [Concomitant]
     Active Substance: LEVOTHYROXINE SODIUM
  11. MIRALAX [Concomitant]
     Active Substance: POLYETHYLENE GLYCOL 3350
  12. CALCIUM CARBONATE;COLECALCIFEROL [Concomitant]
     Active Substance: CALCIUM CARBONATE\CHOLECALCIFEROL

REACTIONS (3)
  - Aspartate aminotransferase increased [Recovered/Resolved]
  - Blood alkaline phosphatase increased [Recovered/Resolved]
  - Alanine aminotransferase increased [Not Recovered/Not Resolved]

NARRATIVE: CASE EVENT DATE: 20190723
